FAERS Safety Report 8426860-5 (Version None)
Quarter: 2012Q2

REPORT INFORMATION
  Report Type: 
  Country: None (occurrence: None)
  Receive Date: 20120611
  Receipt Date: 20120605
  Transmission Date: 20120825
  Serious: Yes (Death)
  Sender: FDA-Public Use
  Company Number: US-ROCHE-1033204

PATIENT
  Sex: Female
  Weight: 56.75 kg

DRUGS (1)
  1. AVASTIN [Suspect]
     Indication: PERITONEAL CARCINOMA METASTATIC
     Route: 042
     Dates: start: 20080922, end: 20091019

REACTIONS (3)
  - PERITONEAL CARCINOMA METASTATIC [None]
  - NEOPLASM PROGRESSION [None]
  - NEOPLASM MALIGNANT [None]
